FAERS Safety Report 5232824-5 (Version None)
Quarter: 2007Q1

REPORT INFORMATION
  Report Type: 
  Country: None (occurrence: None)
  Receive Date: 20070206
  Receipt Date: 20070206
  Transmission Date: 20070707
  Serious: Yes (Disabling)
  Sender: FDA-Public Use
  Company Number: None

PATIENT
  Age: 89 Year
  Sex: Female

DRUGS (1)
  1. LEVAQUIN [Suspect]
     Indication: ANTIBIOTIC PROPHYLAXIS
     Dosage: 500 MG  Q24H   IV
     Route: 042
     Dates: start: 20061110, end: 20061111

REACTIONS (2)
  - INFUSION SITE ERYTHEMA [None]
  - INFUSION SITE PRURITUS [None]
